FAERS Safety Report 23553549 (Version 1)
Quarter: 2024Q1

REPORT INFORMATION
  Report Type: Spontaneous
  Country: JP (occurrence: JP)
  Receive Date: 20240222
  Receipt Date: 20240222
  Transmission Date: 20240409
  Serious: Yes (Hospitalization)
  Sender: FDA-Public Use
  Company Number: JP-BAYER-2023A171413

PATIENT
  Age: 85 Year
  Sex: Male
  Weight: 66.9 kg

DRUGS (8)
  1. VERICIGUAT HYDROCHLORIDE [Suspect]
     Active Substance: VERICIGUAT HYDROCHLORIDE
     Indication: Cardiac failure chronic
     Dosage: 2.5MG
     Route: 048
     Dates: start: 20220324, end: 20230506
  2. VERICIGUAT HYDROCHLORIDE [Suspect]
     Active Substance: VERICIGUAT HYDROCHLORIDE
     Dosage: 2.5MG
     Route: 048
     Dates: start: 20230507
  3. FUROSEMIDE [Concomitant]
     Active Substance: FUROSEMIDE
     Dosage: DAILY DOSE 40 MG
     Dates: start: 202105
  4. LOSARTAN [Concomitant]
     Active Substance: LOSARTAN
     Dosage: DAILY DOSE 25 MG
     Dates: start: 202105
  5. PIMOBENDAN [Concomitant]
     Active Substance: PIMOBENDAN
     Dosage: DAILY DOSE 5 MG
     Dates: start: 202105
  6. AZOSEMIDE [Concomitant]
     Active Substance: AZOSEMIDE
     Dosage: DAILY DOSE 30 MG
     Dates: start: 202105
  7. DAPAGLIFLOZIN [Concomitant]
     Active Substance: DAPAGLIFLOZIN
     Dosage: DAILY DOSE 10 MG
     Dates: start: 202105
  8. TOLVAPTAN [Concomitant]
     Active Substance: TOLVAPTAN
     Dosage: DAILY DOSE 7.5 MG
     Dates: start: 202105

REACTIONS (2)
  - Dehydration [Unknown]
  - Blood pressure decreased [Recovered/Resolved]

NARRATIVE: CASE EVENT DATE: 20230506
